FAERS Safety Report 6974321-2 (Version None)
Quarter: 2010Q3

REPORT INFORMATION
  Report Type: 
  Country: None (occurrence: None)
  Receive Date: 20100909
  Receipt Date: 20100826
  Transmission Date: 20110219
  Serious: Yes (Hospitalization)
  Sender: FDA-Public Use
  Company Number: PHHY2010IE16551

PATIENT
  Sex: Female

DRUGS (3)
  1. CLOZARIL [Suspect]
     Dosage: 350 MG, QD
     Dates: start: 20040531
  2. CLOZARIL [Suspect]
     Dosage: UNK
     Dates: start: 20091006
  3. ARIPIPRAZOLE [Concomitant]
     Dosage: 30 MG, QD
     Dates: end: 20100225

REACTIONS (1)
  - PSYCHOTIC DISORDER [None]
